FAERS Safety Report 15588486 (Version 1)
Quarter: 2018Q4

REPORT INFORMATION
  Report Type: Spontaneous
  Country: KR (occurrence: KR)
  Receive Date: 20181105
  Receipt Date: 20181105
  Transmission Date: 20190205
  Serious: Yes (Death, Other)
  Sender: FDA-Public Use
  Company Number: KR-009507513-1811KOR000001

PATIENT
  Sex: Female

DRUGS (20)
  1. OCODONE [Concomitant]
     Dosage: QUALITY: 8; DAYS: 8
     Dates: start: 20180830, end: 20180914
  2. SODIUM CHLORIDE. [Concomitant]
     Active Substance: SODIUM CHLORIDE
     Dosage: QUALITY: 139; DAYS: 76
     Dates: start: 20180829, end: 20180930
  3. WINUF [Concomitant]
     Dosage: QUALITY: 6; DAYS: 6
     Dates: start: 20180830, end: 20180930
  4. MACPERAN [Concomitant]
     Active Substance: METOCLOPRAMIDE HYDROCHLORIDE
     Dosage: QUALITY: 1; DAYS: 1
     Dates: start: 20180914
  5. SODIUM CHLORIDE. [Concomitant]
     Active Substance: SODIUM CHLORIDE
     Dosage: QUALITY: 45; DAYS: 45
     Dates: start: 20180829, end: 20180930
  6. SODIUM CHLORIDE. [Concomitant]
     Active Substance: SODIUM CHLORIDE
     Dosage: QUALITY: 4; DAYS: 4
     Dates: start: 20180830, end: 20180913
  7. MG TNA [Concomitant]
     Dosage: QUALITY: 2; DAYS: 2
     Dates: start: 20180912, end: 20180913
  8. ALBUMIN HUMAN [Concomitant]
     Active Substance: ALBUMIN HUMAN
     Dosage: QUALITY: 1; DAYS: 1
     Dates: start: 20180913
  9. KEYTRUDA [Suspect]
     Active Substance: PEMBROLIZUMAB
     Indication: CHOLANGIOCARCINOMA
     Dosage: QUALITY: 2; DAYS: 1
     Dates: start: 20180927
  10. TARGOCID [Concomitant]
     Active Substance: TEICOPLANIN
     Dosage: QUALITY: 25; DAYS: 24
     Dates: start: 20180829, end: 20180921
  11. ZIPAN (PROMETHAZINE HYDROCHLORIDE) [Concomitant]
     Dosage: QUALITY: 65; DAYS: 25
     Dates: start: 20180830, end: 20180930
  12. PENIRAMIN [Concomitant]
     Dosage: QUALITY: 7; DAYS: 7
     Dates: start: 20180831, end: 20180919
  13. MEROPEN [Concomitant]
     Active Substance: MEROPENEM
     Dosage: QUALITY: 72; DAYS: 18
     Dates: start: 20180913, end: 20180930
  14. LIDOCAINE HYDROCHLORIDE. [Concomitant]
     Active Substance: LIDOCAINE HYDROCHLORIDE
     Dosage: QUALITY: 4; DAYS: 4
     Dates: start: 20180830, end: 20180920
  15. MIDAZOLAM [Concomitant]
     Active Substance: MIDAZOLAM HYDROCHLORIDE
     Dosage: QUALITY: 1; DAYS: 1
     Dates: start: 20180904
  16. DENOGAN [Concomitant]
     Active Substance: PROPACETAMOL HYDROCHLORIDE
     Dosage: QUALITY: 1; DAYS: 1
     Dates: start: 20180831
  17. HEPARIN SODIUM. [Concomitant]
     Active Substance: HEPARIN SODIUM
     Dosage: QUALITY: 6; DAYS: 6
     Dates: start: 20180906, end: 20180928
  18. NEXIUM [Concomitant]
     Active Substance: ESOMEPRAZOLE MAGNESIUM
     Dosage: QUALITY: 11; DAYS: 6
     Route: 042
     Dates: start: 20180829, end: 20180930
  19. CURAN [Concomitant]
     Active Substance: RANITIDINE HYDROCHLORIDE
     Dosage: QUALITY: 64; DAYS: 32
     Dates: start: 20180830, end: 20180930
  20. OCODONE [Concomitant]
     Dosage: QUALITY: 59; DAYS: 39
     Dates: start: 20180830, end: 20180930

REACTIONS (2)
  - Sepsis [Fatal]
  - Product use in unapproved indication [Unknown]

NARRATIVE: CASE EVENT DATE: 2018
